FAERS Safety Report 8314332-8 (Version None)
Quarter: 2012Q2

REPORT INFORMATION
  Report Type: 
  Country: None (occurrence: None)
  Receive Date: 20120426
  Receipt Date: 20120419
  Transmission Date: 20120825
  Serious: Yes (Death)
  Sender: FDA-Public Use
  Company Number: CA-ROCHE-1044794

PATIENT
  Sex: Male
  Weight: 96.2 kg

DRUGS (9)
  1. ACTEMRA [Suspect]
     Indication: RHEUMATOID ARTHRITIS
     Route: 042
     Dates: start: 20110405, end: 20120124
  2. FOLIC ACID [Concomitant]
  3. SERTRALINE HYDROCHLORIDE [Concomitant]
  4. ASPIRIN [Concomitant]
  5. METHOTREXATE [Concomitant]
     Route: 058
  6. ATORVASTATIN [Concomitant]
  7. RAMIPRIL [Concomitant]
  8. METOPROLOL TARTRATE [Concomitant]
  9. CELEBREX [Concomitant]

REACTIONS (3)
  - INTERSTITIAL LUNG DISEASE [None]
  - PNEUMOTHORAX [None]
  - EMPYEMA [None]
